FAERS Safety Report 8075624-3 (Version None)
Quarter: 2012Q1

REPORT INFORMATION
  Report Type: 
  Country: None (occurrence: None)
  Receive Date: 20120127
  Receipt Date: 20111020
  Transmission Date: 20120608
  Serious: Yes (Other)
  Sender: FDA-Public Use
  Company Number: US-GLAXOSMITHKLINE-A0949895A

PATIENT
  Age: 54 Year
  Sex: Female

DRUGS (6)
  1. MEPRON [Suspect]
     Indication: BABESIOSIS
     Dosage: 750MG PER DAY
     Route: 048
     Dates: start: 20100904, end: 20111001
  2. AZITHROMYCIN [Concomitant]
  3. PLAQUENIL [Concomitant]
  4. URSODIOL [Concomitant]
  5. CEFTRIAXONE [Concomitant]
  6. FOSAMAX [Concomitant]

REACTIONS (1)
  - AMYLASE INCREASED [None]
